FAERS Safety Report 9928456 (Version 2)
Quarter: 2014Q1

REPORT INFORMATION
  Report Type: Spontaneous
  Country: GB (occurrence: GB)
  Receive Date: 20140227
  Receipt Date: 20140227
  Transmission Date: 20141002
  Serious: Yes (Hospitalization)
  Sender: FDA-Public Use
  Company Number: GB-ASTELLAS-2013EU010373

PATIENT
  Sex: Male

DRUGS (3)
  1. XTANDI [Suspect]
     Indication: PROSTATE CANCER METASTATIC
     Dosage: 160 MG, UNKNOWN/D
     Route: 048
     Dates: start: 201309
  2. XTANDI [Suspect]
     Dosage: 40 MG, UNKNOWN/D
     Route: 048
  3. XTANDI [Suspect]
     Dosage: 80 MG, UNKNOWN/D
     Route: 047

REACTIONS (5)
  - Cardiac failure [Recovered/Resolved]
  - Local swelling [Recovered/Resolved]
  - Rash macular [Recovered/Resolved]
  - Mobility decreased [Unknown]
  - Fall [Unknown]
